FAERS Safety Report 7000488-6 (Version None)
Quarter: 2010Q3

REPORT INFORMATION
  Report Type: 
  Country: None (occurrence: None)
  Receive Date: 20100920
  Receipt Date: 20100915
  Transmission Date: 20110219
  Serious: Yes (Other)
  Sender: FDA-Public Use
  Company Number: JP-BAYER-201014676BYL

PATIENT
  Age: 74 Year
  Sex: Male

DRUGS (1)
  1. ASPIRIN [Suspect]
     Indication: ATRIOVENTRICULAR BLOCK
     Route: 048

REACTIONS (3)
  - GASTROINTESTINAL HAEMORRHAGE [None]
  - HENOCH-SCHONLEIN PURPURA [None]
  - NEPHROPATHY [None]
